FAERS Safety Report 7172720 (Version 67)
Quarter: 2022Q2

REPORT INFORMATION
  Report Type: Report from Study
  Country: CA (occurrence: CA)
  Receive Date: 20091110
  Receipt Date: 20220616
  Transmission Date: 20220721
  Serious: Yes (Other)
  Sender: FDA-Public Use
  Company Number: PHHY2009CA17707

PATIENT
  Age: 62 Year
  Sex: Female

DRUGS (4)
  1. SANDOSTATIN LAR DEPOT [Suspect]
     Active Substance: OCTREOTIDE ACETATE
     Indication: Acromegaly
     Dosage: 20 MG, QMO
     Route: 030
     Dates: start: 20090312
  2. SANDOSTATIN LAR DEPOT [Suspect]
     Active Substance: OCTREOTIDE ACETATE
  3. SANDOSTATIN LAR DEPOT [Suspect]
     Active Substance: OCTREOTIDE ACETATE
  4. GLICLAZIDE [Concomitant]
     Active Substance: GLICLAZIDE
     Indication: Product used for unknown indication
     Dosage: UNK
     Route: 048

REACTIONS (59)
  - Intracranial pressure increased [Unknown]
  - Radiculopathy [Unknown]
  - Bronchitis [Unknown]
  - Blood pressure increased [Unknown]
  - Pneumonia [Unknown]
  - Chest discomfort [Unknown]
  - Chest pain [Unknown]
  - Pulmonary congestion [Unknown]
  - Upper respiratory tract infection [Unknown]
  - Oropharyngeal pain [Unknown]
  - Dry throat [Unknown]
  - Rhinitis [Unknown]
  - Throat irritation [Unknown]
  - Sneezing [Unknown]
  - Abdominal distension [Unknown]
  - Rash [Recovered/Resolved]
  - Wound infection [Unknown]
  - Skin warm [Unknown]
  - Oedema [Unknown]
  - Skin discolouration [Unknown]
  - Type 2 diabetes mellitus [Unknown]
  - Illness [Unknown]
  - Influenza [Unknown]
  - Nasal congestion [Unknown]
  - Pyrexia [Unknown]
  - Cough [Unknown]
  - Superficial injury of eye [Unknown]
  - Eye pain [Unknown]
  - Conjunctivitis [Unknown]
  - Sinusitis [Unknown]
  - Body temperature decreased [Unknown]
  - Musculoskeletal stiffness [Unknown]
  - Hypoaesthesia [Unknown]
  - Eye discharge [Unknown]
  - Intraocular pressure increased [Unknown]
  - Ear pain [Unknown]
  - Anxiety [Unknown]
  - Diarrhoea infectious [Unknown]
  - Blood growth hormone increased [Unknown]
  - Arthralgia [Unknown]
  - Dizziness [Recovered/Resolved]
  - Abdominal wall wound [Unknown]
  - Ligament sprain [Unknown]
  - Sciatica [Unknown]
  - Vaginal infection [Not Recovered/Not Resolved]
  - Osteoarthritis [Unknown]
  - Headache [Unknown]
  - Fatigue [Unknown]
  - Nausea [Unknown]
  - Abdominal pain upper [Unknown]
  - Diarrhoea [Unknown]
  - Dyspepsia [Unknown]
  - Dizziness [Unknown]
  - Pain [Unknown]
  - Injection site erythema [Unknown]
  - Injection site reaction [Recovered/Resolved]
  - Injection site swelling [Unknown]
  - Injection site pain [Unknown]
  - Drug ineffective [Unknown]

NARRATIVE: CASE EVENT DATE: 20131008
